FAERS Safety Report 22030449 (Version 1)
Quarter: 2023Q1

REPORT INFORMATION
  Report Type: Spontaneous
  Country: US (occurrence: US)
  Receive Date: 20230223
  Receipt Date: 20230223
  Transmission Date: 20230418
  Serious: No
  Sender: FDA-Public Use
  Company Number: US-LANTHEUS-LMI-2022-00957

PATIENT
  Age: 55 Year
  Sex: Male
  Weight: 168 kg

DRUGS (1)
  1. DEFINITY [Suspect]
     Active Substance: PERFLUTREN
     Indication: Product used for unknown indication
     Dosage: UNK
     Dates: start: 20220722, end: 20220722

REACTIONS (1)
  - Pain in extremity [Recovered/Resolved]

NARRATIVE: CASE EVENT DATE: 20220722
